FAERS Safety Report 9361324 (Version 2)
Quarter: 2013Q3

REPORT INFORMATION
  Report Type: Spontaneous
  Country: DE (occurrence: DE)
  Receive Date: 20130621
  Receipt Date: 20130731
  Transmission Date: 20140515
  Serious: Yes (Other)
  Sender: FDA-Public Use
  Company Number: DE-BAYER-2013-076832

PATIENT
  Age: 60 Year
  Sex: Female

DRUGS (2)
  1. GADOVIST [Suspect]
     Dosage: 6 ML, ONCE
     Dates: start: 20130619, end: 20130619
  2. METOPROLOL [Concomitant]
     Indication: HYPERTENSION

REACTIONS (2)
  - Nausea [None]
  - Hypertension [None]
